FAERS Safety Report 8965841 (Version 1)
Quarter: 2012Q4

REPORT INFORMATION
  Report Type: 
  Country: FR (occurrence: FR)
  Receive Date: 20121214
  Receipt Date: 20121214
  Transmission Date: 20130627
  Serious: Yes (Other)
  Sender: FDA-Public Use
  Company Number: FR-GILEAD-2012-0066122

PATIENT
  Age: 35 Year
  Sex: Female

DRUGS (5)
  1. EVIPLERA [Suspect]
     Indication: PRODUCT USED FOR UNKNOWN INDICATION
     Dosage: UNK
     Dates: start: 20121016
  2. EVIPLERA [Suspect]
     Indication: OFF LABEL USE
  3. TRUVADA [Concomitant]
     Dosage: UNK
     Dates: end: 20121016
  4. REYATAZ [Concomitant]
     Dosage: UNK
     Dates: end: 20121016
  5. NORVIR [Concomitant]
     Dosage: UNK
     Dates: end: 20121016

REACTIONS (1)
  - Neutropenia [Unknown]
